FAERS Safety Report 8543432 (Version 6)
Quarter: 2013Q1

REPORT INFORMATION
  Report Type: Spontaneous
  Country: US (occurrence: US)
  Receive Date: 20120503
  Receipt Date: 20130329
  Transmission Date: 20140127
  Serious: No
  Sender: FDA-Public Use
  Company Number: US-BIOGENIDEC-2012BI014534

PATIENT
  Age: 45 None
  Sex: Female

DRUGS (5)
  1. TYSABRI [Suspect]
     Indication: MULTIPLE SCLEROSIS
     Route: 042
  2. TYSABRI [Suspect]
     Indication: MULTIPLE SCLEROSIS
     Route: 042
     Dates: start: 20110810, end: 20120523
  3. AVONEX [Concomitant]
     Indication: MULTIPLE SCLEROSIS
     Route: 030
     Dates: start: 20060908
  4. AVONEX [Concomitant]
     Indication: MULTIPLE SCLEROSIS
     Route: 030
     Dates: start: 20120601
  5. ZANTAC [Concomitant]
     Indication: PREMEDICATION

REACTIONS (12)
  - Tremor [Recovered/Resolved]
  - Hypersensitivity [Recovered/Resolved]
  - Flushing [Recovered/Resolved]
  - Infusion related reaction [Recovered/Resolved]
  - Chills [Recovered/Resolved]
  - Bronchitis [Recovered/Resolved]
  - Feeling cold [Recovered/Resolved]
  - Heart rate decreased [Recovered/Resolved]
  - Haemorrhage [Recovered/Resolved]
  - Drug specific antibody present [Unknown]
  - Chest pain [Recovered/Resolved]
  - Multiple sclerosis relapse [Recovered/Resolved]
